FAERS Safety Report 15370742 (Version 1)
Quarter: 2018Q3

REPORT INFORMATION
  Report Type: Report from Study
  Country: US (occurrence: US)
  Receive Date: 20180911
  Receipt Date: 20180911
  Transmission Date: 20181010
  Serious: Yes (Death, Life-Threatening, Other)
  Sender: FDA-Public Use
  Company Number: US-TEVA-2018-US-952652

PATIENT
  Age: 21 Year
  Sex: Female

DRUGS (3)
  1. MELATONIN [Suspect]
     Active Substance: MELATONIN
     Route: 065
  2. HYDROXYZINE HCL [Suspect]
     Active Substance: HYDROXYZINE HYDROCHLORIDE
     Route: 065
  3. FLUOXETINE [Suspect]
     Active Substance: FLUOXETINE HYDROCHLORIDE
     Route: 065

REACTIONS (13)
  - Coma [Unknown]
  - Coagulopathy [Unknown]
  - Hypotension [Unknown]
  - Electrocardiogram QT prolonged [Unknown]
  - Toxicity to various agents [Fatal]
  - Respiratory depression [Unknown]
  - Depressed level of consciousness [Unknown]
  - Hepatotoxicity [Unknown]
  - Acute kidney injury [Unknown]
  - Metabolic acidosis [Unknown]
  - Bradypnoea [Unknown]
  - Rhabdomyolysis [Unknown]
  - Anion gap [Unknown]
